FAERS Safety Report 6122212-1 (Version None)
Quarter: 2009Q1

REPORT INFORMATION
  Report Type: 
  Country: None (occurrence: None)
  Receive Date: 20090318
  Receipt Date: 20090306
  Transmission Date: 20090719
  Serious: Yes (Other)
  Sender: FDA-Public Use
  Company Number: FR-WYE-H08486609

PATIENT
  Age: 67 Year
  Sex: Male

DRUGS (1)
  1. EFFEXOR [Suspect]
     Indication: DEPRESSION
     Dosage: UNKNOWN
     Route: 048
     Dates: start: 20060101, end: 20070101

REACTIONS (3)
  - COELIAC DISEASE [None]
  - COLITIS MICROSCOPIC [None]
  - CONDITION AGGRAVATED [None]
